FAERS Safety Report 6272260-6 (Version None)
Quarter: 2009Q3

REPORT INFORMATION
  Report Type: 
  Country: None (occurrence: None)
  Receive Date: 20090717
  Receipt Date: 20090707
  Transmission Date: 20100115
  Serious: Yes (Hospitalization)
  Sender: FDA-Public Use
  Company Number: FR-PFIZER INC-2009236975

PATIENT
  Age: 88 Year

DRUGS (2)
  1. LYRICA [Suspect]
     Indication: HERPES ZOSTER OPHTHALMIC
     Dosage: 50 MG, 2X/DAY
     Route: 048
     Dates: start: 20081204, end: 20081207
  2. ZELITREX [Suspect]
     Indication: HERPES ZOSTER OPHTHALMIC
     Dosage: 1000 MG, 2X/DAY
     Route: 048
     Dates: start: 20081204, end: 20081207

REACTIONS (3)
  - EPILEPSY [None]
  - OVERDOSE [None]
  - RENAL FAILURE ACUTE [None]
